FAERS Safety Report 8153978-7 (Version None)
Quarter: 2012Q1

REPORT INFORMATION
  Report Type: 
  Country: None (occurrence: None)
  Receive Date: 20120221
  Receipt Date: 20120221
  Transmission Date: 20120608
  Serious: Yes (Other)
  Sender: FDA-Public Use
  Company Number: None

PATIENT
  Age: 42 Year
  Sex: Female
  Weight: 56.699 kg

DRUGS (1)
  1. DILTIAZEM [Suspect]
     Indication: MIGRAINE
     Dates: start: 20120208, end: 20120217

REACTIONS (4)
  - OEDEMA PERIPHERAL [None]
  - DYSPNOEA [None]
  - CHEST DISCOMFORT [None]
  - CONSTIPATION [None]
